FAERS Safety Report 21397419 (Version 1)
Quarter: 2022Q3

REPORT INFORMATION
  Report Type: Spontaneous
  Country: US (occurrence: None)
  Receive Date: 20220929
  Receipt Date: 20220929
  Transmission Date: 20221027
  Serious: Yes (Death)
  Sender: FDA-Public Use
  Company Number: None

PATIENT
  Age: 65 Year
  Sex: Female

DRUGS (4)
  1. TRIENTINE [Suspect]
     Active Substance: TRIENTINE
     Indication: Hepato-lenticular degeneration
     Dosage: 500MG BID ORAL?
     Route: 048
     Dates: start: 20201102, end: 20220914
  2. RELPAX [Concomitant]
     Active Substance: ELETRIPTAN HYDROBROMIDE
  3. FLUTICASONE [Concomitant]
     Active Substance: FLUTICASONE
  4. LOPERAMIDE [Concomitant]

REACTIONS (1)
  - Death [None]

NARRATIVE: CASE EVENT DATE: 20220914
